FAERS Safety Report 9781635 (Version 3)
Quarter: 2014Q1

REPORT INFORMATION
  Report Type: Spontaneous
  Country: IT (occurrence: IT)
  Receive Date: 20131224
  Receipt Date: 20140110
  Transmission Date: 20141002
  Serious: Yes (Life-Threatening)
  Sender: FDA-Public Use
  Company Number: IT-WATSON-2013-23137

PATIENT
  Age: 93 Year
  Sex: Male

DRUGS (8)
  1. LORAZEPAM (UNKNOWN) [Suspect]
     Indication: COGNITIVE DISORDER
     Dosage: 1 MG AT 20, DAILY
     Route: 048
     Dates: start: 20130920
  2. LORAZEPAM (UNKNOWN) [Suspect]
     Indication: VASCULAR ENCEPHALOPATHY
  3. STILNOX [Suspect]
     Indication: COGNITIVE DISORDER
     Dosage: 10 MG, 1 TABLET AT 20 DAILY
     Route: 048
     Dates: start: 20130920
  4. STILNOX [Suspect]
     Indication: VASCULAR ENCEPHALOPATHY
  5. PANTORC [Concomitant]
     Indication: PROPHYLAXIS AGAINST GASTROINTESTINAL ULCER
     Dosage: 20 MG, UNK
     Route: 048
     Dates: end: 20130920
  6. SEROQUEL [Concomitant]
     Indication: PRODUCT USED FOR UNKNOWN INDICATION
     Dosage: 50 MG, UNK
     Route: 048
  7. HALDOL                             /00027401/ [Concomitant]
     Indication: AGITATION
     Dosage: 10 DF, UNK
     Route: 048
  8. CARDIOASPIRIN [Concomitant]
     Indication: THROMBOSIS PROPHYLAXIS
     Dosage: 100 MG, UNK
     Route: 048
     Dates: end: 20130920

REACTIONS (7)
  - Subdural haematoma [Recovering/Resolving]
  - Drop attacks [Recovering/Resolving]
  - Fall [Recovering/Resolving]
  - Cholecystitis acute [Unknown]
  - Sepsis [Unknown]
  - Limb injury [Unknown]
  - Ear abrasion [Unknown]
